FAERS Safety Report 9531016 (Version 4)
Quarter: 2014Q1

REPORT INFORMATION
  Report Type: Other
  Country: FR (occurrence: FR)
  Receive Date: 20130918
  Receipt Date: 20140117
  Transmission Date: 20141002
  Serious: Yes (Hospitalization)
  Sender: FDA-Public Use
  Company Number: FR-TAKEDA-0240721

PATIENT
  Age: 62 Year
  Sex: Female

DRUGS (5)
  1. TACHOSIL [Suspect]
     Indication: PRODUCT USED FOR UNKNOWN INDICATION
     Dosage: UNK
     Dates: start: 20130204, end: 20130204
  2. ALBUNORM /01102501/ [Suspect]
     Indication: PRODUCT USED FOR UNKNOWN INDICATION
     Dosage: UNK
     Route: 042
     Dates: start: 20130204, end: 20130204
  3. ALBUNORM /01102501/ [Suspect]
     Indication: PRODUCT USED FOR UNKNOWN INDICATION
     Dosage: UNK
     Dates: start: 20130203
  4. CLOTTAFACT [Suspect]
     Indication: PRODUCT USED FOR UNKNOWN INDICATION
     Dosage: UNK
     Dates: start: 20130204, end: 20130204
  5. CARDENSIEL [Concomitant]
     Indication: EXTRASYSTOLES

REACTIONS (1)
  - Hepatitis E [Recovering/Resolving]
